FAERS Safety Report 8100708-0 (Version None)
Quarter: 2012Q1

REPORT INFORMATION
  Report Type: 
  Country: None (occurrence: None)
  Receive Date: 20120129
  Receipt Date: 20111107
  Transmission Date: 20120608
  Serious: No
  Sender: FDA-Public Use
  Company Number: US-ABBOTT-11P-163-0872021-00

PATIENT
  Sex: Female

DRUGS (7)
  1. PENTASA [Concomitant]
     Indication: CROHN'S DISEASE
  2. ONDANSETRON HCL [Concomitant]
     Indication: NAUSEA
  3. NEXIUM [Concomitant]
     Indication: DYSPEPSIA
  4. HUMIRA [Suspect]
     Dates: end: 20111001
  5. HUMIRA [Suspect]
     Indication: CROHN'S DISEASE
     Dosage: DAY ONE
     Route: 058
     Dates: start: 20110901, end: 20110901
  6. LOMOTIL [Concomitant]
     Indication: DIARRHOEA
  7. HUMIRA [Suspect]
     Dosage: DAY 15
     Route: 058

REACTIONS (2)
  - CROHN'S DISEASE [None]
  - DRUG INEFFECTIVE [None]
